FAERS Safety Report 8416765-8 (Version None)
Quarter: 2012Q2

REPORT INFORMATION
  Report Type: 
  Country: None (occurrence: None)
  Receive Date: 20120606
  Receipt Date: 20120530
  Transmission Date: 20120825
  Serious: Yes (Hospitalization, Other)
  Sender: FDA-Public Use
  Company Number: US-MERCK-1203USA02841

PATIENT
  Age: 63 Year
  Sex: Female
  Weight: 55 kg

DRUGS (1)
  1. FOSAMAX [Suspect]
     Indication: OSTEOPOROSIS
     Route: 048
     Dates: start: 20010801, end: 20080801

REACTIONS (24)
  - SENSORY DISTURBANCE [None]
  - GLUCOSE TOLERANCE IMPAIRED [None]
  - HAEMORRHOIDS [None]
  - FALL [None]
  - VITAMIN D DEFICIENCY [None]
  - VULVOVAGINAL DRYNESS [None]
  - CARPAL TUNNEL SYNDROME [None]
  - ADVERSE EVENT [None]
  - TRIGGER FINGER [None]
  - FEMUR FRACTURE [None]
  - TONSILLAR DISORDER [None]
  - OSTEOPENIA [None]
  - LOW TURNOVER OSTEOPATHY [None]
  - OSTEOARTHRITIS [None]
  - HYPERTENSION [None]
  - HAEMATOCHEZIA [None]
  - BRONCHITIS [None]
  - SPINAL COMPRESSION FRACTURE [None]
  - DIVERTICULUM INTESTINAL [None]
  - APPENDIX DISORDER [None]
  - HYPERCHOLESTEROLAEMIA [None]
  - VEIN DISORDER [None]
  - UTERINE DISORDER [None]
  - CARDIAC DISORDER [None]
